FAERS Safety Report 14487506 (Version 1)
Quarter: 2018Q1

REPORT INFORMATION
  Report Type: Spontaneous
  Country: US (occurrence: US)
  Receive Date: 20180204
  Receipt Date: 20180204
  Transmission Date: 20180509
  Serious: Yes (Disabling)
  Sender: FDA-Public Use
  Company Number: None

PATIENT
  Sex: Female
  Weight: 90 kg

DRUGS (2)
  1. LEVOFLOXACIN 500 MG TABLETS [Suspect]
     Active Substance: LEVOFLOXACIN
     Indication: UPPER RESPIRATORY TRACT INFECTION
     Dosage: ?          QUANTITY:10 TABLET(S);?
     Route: 048
     Dates: start: 20180126, end: 20180204
  2. FORTIFY WOMEN^S PROBIOTIC [Concomitant]

REACTIONS (4)
  - Musculoskeletal discomfort [None]
  - Musculoskeletal stiffness [None]
  - Gait inability [None]
  - Pain [None]

NARRATIVE: CASE EVENT DATE: 20180203
